FAERS Safety Report 7011916-4 (Version None)
Quarter: 2010Q3

REPORT INFORMATION
  Report Type: 
  Country: None (occurrence: None)
  Receive Date: 20100924
  Receipt Date: 20100917
  Transmission Date: 20110219
  Serious: Yes (Death, Hospitalization)
  Sender: FDA-Public Use
  Company Number: US-BIOGENIDEC-2010BI030796

PATIENT
  Age: 54 Year
  Sex: Female

DRUGS (7)
  1. AVONEX [Suspect]
     Indication: MULTIPLE SCLEROSIS
     Route: 030
     Dates: end: 20100721
  2. AVONEX [Suspect]
     Route: 030
     Dates: start: 19990521
  3. THIAMINE HCL [Concomitant]
  4. MULTI-VITAMIN [Concomitant]
  5. ADVAIR DISKUS 100/50 [Concomitant]
  6. ALBUTEROL [Concomitant]
  7. CALCIUM CITRATE [Concomitant]

REACTIONS (3)
  - COMA [None]
  - RUPTURED CEREBRAL ANEURYSM [None]
  - VENTRICULAR TACHYCARDIA [None]
